FAERS Safety Report 5224766-6 (Version None)
Quarter: 2007Q1

REPORT INFORMATION
  Report Type: 
  Country: None (occurrence: None)
  Receive Date: 20070129
  Receipt Date: 20070129
  Transmission Date: 20070707
  Serious: No
  Sender: FDA-Public Use
  Company Number: None

PATIENT
  Sex: Male
  Weight: 111.5849 kg

DRUGS (1)
  1. LEXAPRO [Suspect]
     Indication: GENERALISED ANXIETY DISORDER
     Dosage: 10MG DAILY PO
     Route: 048
     Dates: start: 20060918, end: 20061018

REACTIONS (2)
  - AMNESIA [None]
  - COGNITIVE DISORDER [None]
